FAERS Safety Report 8862323 (Version 2)
Quarter: 2013Q2

REPORT INFORMATION
  Report Type: Spontaneous
  Country: IT (occurrence: IT)
  Receive Date: 20121026
  Receipt Date: 20130422
  Transmission Date: 20140414
  Serious: Yes (Life-Threatening)
  Sender: FDA-Public Use
  Company Number: IT-ROCHE-1148716

PATIENT
  Age: 49 Year
  Sex: Male

DRUGS (4)
  1. ROACTEMRA [Suspect]
     Indication: RHEUMATOID ARTHRITIS
     Route: 042
     Dates: start: 20120401, end: 20120601
  2. DELTACORTENE [Concomitant]
     Route: 048
  3. FOSAVANCE [Concomitant]
     Route: 048
  4. METHOTREXATE [Concomitant]
     Route: 030

REACTIONS (3)
  - Necrotising fasciitis [Recovered/Resolved with Sequelae]
  - Renal failure acute [Recovered/Resolved with Sequelae]
  - Sepsis [Recovered/Resolved with Sequelae]
